FAERS Safety Report 17243377 (Version 5)
Quarter: 2020Q2

REPORT INFORMATION
  Report Type: Spontaneous
  Country: US (occurrence: US)
  Receive Date: 20200107
  Receipt Date: 20200512
  Transmission Date: 20200713
  Serious: No
  Sender: FDA-Public Use
  Company Number: US-LEXICON PHARMACEUTICALS, INC-19-1606-01113

PATIENT
  Age: 70 Year
  Sex: Male

DRUGS (6)
  1. XERMELO [Suspect]
     Active Substance: TELOTRISTAT ETHYL
     Indication: SMALL INTESTINE CARCINOMA
     Dates: start: 20191203
  2. XERMELO [Suspect]
     Active Substance: TELOTRISTAT ETHYL
  3. PEPTO-BISMOL [Concomitant]
     Active Substance: BISMUTH SUBSALICYLATE
  4. LANREOTIDE [Concomitant]
     Active Substance: LANREOTIDE
  5. XERMELO [Suspect]
     Active Substance: TELOTRISTAT ETHYL
  6. SANDOSTATIN [Concomitant]
     Active Substance: OCTREOTIDE ACETATE

REACTIONS (3)
  - Diarrhoea [Recovering/Resolving]
  - Diarrhoea [Recovered/Resolved]
  - Off label use [Not Recovered/Not Resolved]

NARRATIVE: CASE EVENT DATE: 20200120
